FAERS Safety Report 8675488 (Version 3)
Quarter: 2013Q4

REPORT INFORMATION
  Report Type: Spontaneous
  Country: JP (occurrence: JP)
  Receive Date: 20120720
  Receipt Date: 20131105
  Transmission Date: 20140711
  Serious: Yes (Death)
  Sender: FDA-Public Use
  Company Number: JP-009507513-1207JPN005341

PATIENT
  Age: 94 Year
  Sex: Male

DRUGS (5)
  1. GLACTIV [Suspect]
     Indication: TYPE 2 DIABETES MELLITUS
     Dosage: 50 MG, QD
     Route: 048
     Dates: start: 20120525, end: 20120629
  2. SPIRONOLACTONE [Concomitant]
  3. FAMOSTAGINE [Concomitant]
  4. WARFARIN [Concomitant]
  5. LASIX (FUROSEMIDE) [Concomitant]

REACTIONS (3)
  - Cholecystitis acute [Fatal]
  - Pancreatitis acute [Fatal]
  - Pneumobilia [Fatal]
